FAERS Safety Report 7376899-6 (Version None)
Quarter: 2011Q1

REPORT INFORMATION
  Report Type: 
  Country: None (occurrence: None)
  Receive Date: 20110327
  Receipt Date: 20110324
  Transmission Date: 20110831
  Serious: Yes (Hospitalization)
  Sender: FDA-Public Use
  Company Number: GB-BRISTOL-MYERS SQUIBB COMPANY-15603434

PATIENT
  Age: 40 Year
  Sex: Male

DRUGS (2)
  1. IPILIMUMAB [Suspect]
     Indication: MALIGNANT MELANOMA
     Dosage: 4TH DOSE:23FEB11 345MG NO OF DOSES:4
     Route: 042
     Dates: start: 20101223, end: 20110223
  2. LOPERAMIDE [Concomitant]
     Dosage: 14D EACH CYCLE
     Dates: start: 20101223, end: 20110223

REACTIONS (1)
  - COLITIS [None]
